FAERS Safety Report 25929841 (Version 1)
Quarter: 2025Q4

REPORT INFORMATION
  Report Type: Spontaneous
  Country: US (occurrence: None)
  Receive Date: 20251015
  Receipt Date: 20251015
  Transmission Date: 20260117
  Serious: Yes (Hospitalization, Disabling)
  Sender: FDA-CTU
  Company Number: None

PATIENT
  Age: 25 Year
  Sex: Male
  Weight: 77.85 kg

DRUGS (4)
  1. ABILIFY [Suspect]
     Active Substance: ARIPIPRAZOLE
  2. TRINTELLIX [Suspect]
     Active Substance: VORTIOXETINE HYDROBROMIDE
  3. BUSPIRONE [Suspect]
     Active Substance: BUSPIRONE HYDROCHLORIDE
  4. PROPRANOLOL [Concomitant]
     Active Substance: PROPRANOLOL HYDROCHLORIDE

REACTIONS (10)
  - Withdrawal syndrome [None]
  - Genital hypoaesthesia [None]
  - Sexual dysfunction [None]
  - Emotional disorder [None]
  - Memory impairment [None]
  - Photophobia [None]
  - Vertigo [None]
  - Dizziness [None]
  - Headache [None]
  - Dry eye [None]

NARRATIVE: CASE EVENT DATE: 20250503
